FAERS Safety Report 9499618 (Version 2)
Quarter: 2014Q1

REPORT INFORMATION
  Report Type: Spontaneous
  Country: US (occurrence: None)
  Receive Date: 20130118
  Receipt Date: 20140128
  Transmission Date: 20141002
  Serious: Yes (Hospitalization, Other)
  Sender: FDA-Public Use
  Company Number: A-US2012-59982

PATIENT
  Age: 75 Year
  Sex: Female

DRUGS (2)
  1. TRACLEER (BOSENTAN) [Suspect]
     Indication: PULMONARY ARTERIAL HYPERTENSION
     Route: 048
  2. COUMADIN (WARFARIN SODIUM) [Concomitant]

REACTIONS (2)
  - Pneumonia [None]
  - Bronchitis [None]
